FAERS Safety Report 14285161 (Version 3)
Quarter: 2018Q1

REPORT INFORMATION
  Report Type: Report from Study
  Country: AT (occurrence: AT)
  Receive Date: 20171214
  Receipt Date: 20180321
  Transmission Date: 20180509
  Serious: Yes (Hospitalization, Other)
  Sender: FDA-Public Use
  Company Number: AT-PFIZER INC-2017525992

PATIENT
  Age: 73 Year
  Sex: Male
  Weight: 77 kg

DRUGS (20)
  1. GEMCITABINE HYDROCHLORIDE. [Suspect]
     Active Substance: GEMCITABINE HYDROCHLORIDE
     Dosage: 701 MG/M2, UNK
     Dates: start: 20170719, end: 20170802
  2. EUTHYROX [Concomitant]
     Active Substance: LEVOTHYROXINE SODIUM
     Indication: THYROID THERAPY
     Dosage: 75 UG, UNK
  3. AMLODIPINE [Concomitant]
     Active Substance: AMLODIPINE BESYLATE
     Indication: CARDIAC FAILURE
  4. SEDACORON [Concomitant]
     Active Substance: AMIODARONE HYDROCHLORIDE
     Indication: SINUS RHYTHM
  5. ACECOMB [Concomitant]
     Active Substance: HYDROCHLOROTHIAZIDE\LISINOPRIL
     Indication: HYPERTENSION
  6. PANTOPRAZOL [Concomitant]
     Active Substance: PANTOPRAZOLE SODIUM
     Dosage: 40 MG, 1X/DAY
  7. METOHEXAL /00376902/ [Concomitant]
     Active Substance: METOPROLOL SUCCINATE
     Indication: CARDIAC FAILURE
     Dosage: UNK
  8. NOVALGIN (METAMIZOLE SODIUM) [Concomitant]
     Active Substance: METAMIZOLE SODIUM
     Dosage: 30 GTT, UNK
  9. ABRAXANE [Suspect]
     Active Substance: PACLITAXEL
     Dosage: 89 MG/M2, UNK
     Route: 041
     Dates: start: 20170719, end: 20170802
  10. LOVENOX [Concomitant]
     Active Substance: ENOXAPARIN SODIUM
     Indication: ATRIAL FIBRILLATION
     Dosage: 60 MG, UNK
  11. ZOFRAN [Concomitant]
     Active Substance: ONDANSETRON HYDROCHLORIDE
     Indication: NAUSEA
     Dosage: 8 MG, UNK
  12. ABRAXANE [Suspect]
     Active Substance: PACLITAXEL
     Indication: PANCREATIC CARCINOMA
     Dosage: 125 MG/M2, UNK
     Route: 041
     Dates: start: 20160415, end: 20160415
  13. ACECOMB [Concomitant]
     Active Substance: HYDROCHLOROTHIAZIDE\LISINOPRIL
     Indication: CARDIAC FAILURE
     Dosage: UNK
  14. MAGNOSOLV [Concomitant]
     Indication: MAGNESIUM DEFICIENCY
     Dosage: UNK UNK, 1X/DAY
  15. GEMCITABINE HYDROCHLORIDE. [Suspect]
     Active Substance: GEMCITABINE HYDROCHLORIDE
     Indication: PANCREATIC CARCINOMA
     Dosage: 1000 MG/M2, UNK
     Dates: start: 20160415, end: 20160415
  16. METOHEXAL /00376902/ [Concomitant]
     Active Substance: METOPROLOL SUCCINATE
     Indication: ATRIAL FIBRILLATION
  17. PASPERTIN /00041902/ [Concomitant]
     Active Substance: METOCLOPRAMIDE HYDROCHLORIDE
     Indication: NAUSEA
     Dosage: UNK
  18. SEDACORON [Concomitant]
     Active Substance: AMIODARONE HYDROCHLORIDE
     Indication: ATRIAL FIBRILLATION
     Dosage: 400 MG, 1X/DAY
  19. ADAMON /00599202/ [Concomitant]
     Indication: PAIN
     Dosage: 150 MG, 1X/DAY
  20. AMLODIPINE [Concomitant]
     Active Substance: AMLODIPINE BESYLATE
     Indication: HYPERTENSION
     Dosage: 10 MG, 1X/DAY

REACTIONS (8)
  - Thrombocytopenia [Recovered/Resolved]
  - Neoplasm progression [Unknown]
  - Pneumonia [Recovered/Resolved]
  - Neuropathy peripheral [Not Recovered/Not Resolved]
  - Neutropenia [Recovered/Resolved]
  - Tooth extraction [Recovered/Resolved]
  - Pneumonia [Recovered/Resolved]
  - Febrile infection [Recovered/Resolved]

NARRATIVE: CASE EVENT DATE: 20160924
